FAERS Safety Report 8738487 (Version 2)
Quarter: 2012Q4

REPORT INFORMATION
  Report Type: 
  Country: CA (occurrence: CA)
  Receive Date: 20120823
  Receipt Date: 20121011
  Transmission Date: 20130627
  Serious: Yes (Other)
  Sender: FDA-Public Use
  Company Number: CA-BAYER-2012-086015

PATIENT
  Age: 64 Year
  Sex: Female
  Weight: 61.22 kg

DRUGS (3)
  1. CIPRO XL [Suspect]
     Indication: INFECTION PROPHYLAXIS
     Dosage: 500 mg, BID
     Route: 048
     Dates: start: 20090624, end: 20090626
  2. CIPRO XL [Suspect]
     Indication: INFECTION PROPHYLAXIS
     Dosage: 1000 mg, ONCE
     Route: 048
     Dates: start: 20110302
  3. ACTONEL [Concomitant]
     Dosage: 35 mg, OW
     Route: 048
     Dates: end: 201011

REACTIONS (2)
  - Tachyarrhythmia [Recovered/Resolved]
  - Ventricular extrasystoles [Recovered/Resolved]
